FAERS Safety Report 6619063-8 (Version None)
Quarter: 2010Q1

REPORT INFORMATION
  Report Type: 
  Country: None (occurrence: None)
  Receive Date: 20100308
  Receipt Date: 20100301
  Transmission Date: 20100710
  Serious: Yes (Other)
  Sender: FDA-Public Use
  Company Number: SE-ROCHE-688062

PATIENT
  Sex: Female

DRUGS (1)
  1. ACTEMRA [Suspect]
     Dosage: DOSE,ROUTE, FREQUENCY UNKNOWN
     Route: 065

REACTIONS (2)
  - BRADYCARDIA [None]
  - CARDIAC FLUTTER [None]
